FAERS Safety Report 7869592-4 (Version None)
Quarter: 2011Q4

REPORT INFORMATION
  Report Type: 
  Country: None (occurrence: None)
  Receive Date: 20111028
  Receipt Date: 20111028
  Transmission Date: 20120403
  Serious: No
  Sender: FDA-Public Use
  Company Number: None

PATIENT
  Age: 62 Year
  Sex: Female

DRUGS (13)
  1. METHADONE HCL [Concomitant]
  2. K-TAB [Concomitant]
  3. DAILY-VITE [Concomitant]
  4. LEVOTHROID [Concomitant]
  5. VICODIN [Concomitant]
  6. ZOVIRAX [Concomitant]
  7. ATIVAN [Concomitant]
  8. PRILOSEC [Concomitant]
  9. REVLIMID [Suspect]
     Indication: MULTIPLE MYELOMA
     Dosage: 25MG QDX21D/28D ORALLY
     Route: 048
  10. COUMADIN [Concomitant]
  11. PROCRIT [Concomitant]
  12. ZOFRAN [Concomitant]
  13. VELCADE [Concomitant]

REACTIONS (1)
  - NEUTROPHIL COUNT DECREASED [None]
